FAERS Safety Report 5038316-0 (Version None)
Quarter: 2006Q2

REPORT INFORMATION
  Report Type: 
  Country: None (occurrence: None)
  Receive Date: 20060628
  Receipt Date: 20060628
  Transmission Date: 20061013
  Serious: No
  Sender: FDA-Public Use
  Company Number: None

PATIENT
  Age: 20 Year
  Sex: Female

DRUGS (3)
  1. TRAMADOL HYDROCHLORIDE [Suspect]
     Indication: PAIN
     Dosage: ORAL;;0;0
     Route: 048
     Dates: start: 20060404, end: 20060405
  2. CODEINE [Concomitant]
  3. TRAMADOL HCL [Concomitant]

REACTIONS (1)
  - NAUSEA [None]
